FAERS Safety Report 5199064-X (Version None)
Quarter: 2006Q4

REPORT INFORMATION
  Report Type: 
  Country: None (occurrence: None)
  Receive Date: 20060919
  Receipt Date: 20051208
  Transmission Date: 20070319
  Serious: Yes (Other)
  Sender: FDA-Public Use
  Company Number: HQWYE952412DEC05

PATIENT
  Age: 60 Year
  Sex: Male
  Weight: 113.5 kg

DRUGS (1)
  1. ADVIL [Suspect]
     Indication: HEADACHE
     Dosage: 1 LIQUI-GEL AS NEEDED, ORAL
     Route: 048
     Dates: end: 20051101

REACTIONS (3)
  - CONDITION AGGRAVATED [None]
  - FEELING ABNORMAL [None]
  - TINNITUS [None]
